FAERS Safety Report 6245115-0 (Version None)
Quarter: 2009Q2

REPORT INFORMATION
  Report Type: 
  Country: None (occurrence: None)
  Receive Date: 20090619
  Receipt Date: 20090330
  Transmission Date: 20091009
  Serious: No
  Sender: FDA-Public Use
  Company Number: ALL1-2009-00840

PATIENT
  Age: 6 Year
  Sex: Male
  Weight: 23.1 kg

DRUGS (1)
  1. VYVANSE [Suspect]
     Indication: ATTENTION DEFICIT/HYPERACTIVITY DISORDER
     Dosage: 30 GM, 1X/DAY:QD, ORAL
     Route: 048
     Dates: start: 20090201

REACTIONS (2)
  - ANTISOCIAL BEHAVIOUR [None]
  - PRODUCT QUALITY ISSUE [None]
